FAERS Safety Report 5362632-6 (Version None)
Quarter: 2007Q2

REPORT INFORMATION
  Report Type: 
  Country: None (occurrence: None)
  Receive Date: 20070619
  Receipt Date: 20070607
  Transmission Date: 20071010
  Serious: Yes (Other)
  Sender: FDA-Public Use
  Company Number: US-PFIZER INC-2004064444

PATIENT
  Age: 18 Year
  Sex: Male

DRUGS (6)
  1. NEURONTIN [Suspect]
     Indication: NERVE INJURY
     Dates: start: 20020424, end: 20040101
  2. NEURONTIN [Suspect]
     Indication: MIGRAINE
  3. NEURONTIN [Suspect]
     Indication: PSYCHOTIC DISORDER
  4. RISPERDAL [Concomitant]
  5. KLONOPIN [Concomitant]
     Dates: start: 20020424
  6. LITHIUM CARBONATE [Concomitant]

REACTIONS (4)
  - ANXIETY [None]
  - EMOTIONAL DISTRESS [None]
  - INJURY [None]
  - PSYCHOTIC DISORDER [None]
